FAERS Safety Report 16276767 (Version 1)
Quarter: 2019Q2

REPORT INFORMATION
  Report Type: Spontaneous
  Country: US (occurrence: US)
  Receive Date: 20190506
  Receipt Date: 20190506
  Transmission Date: 20190711
  Serious: Yes (Other)
  Sender: FDA-Public Use
  Company Number: US-JNJFOC-20190501273

PATIENT
  Age: 16 Year
  Sex: Male
  Weight: 77 kg

DRUGS (1)
  1. RISPERDAL [Suspect]
     Active Substance: RISPERIDONE
     Indication: PRODUCT USED FOR UNKNOWN INDICATION
     Route: 048
     Dates: end: 200810

REACTIONS (3)
  - Blood prolactin increased [Unknown]
  - Breast enlargement [Unknown]
  - Intellectual disability [Unknown]

NARRATIVE: CASE EVENT DATE: 20080404
